FAERS Safety Report 23911766 (Version 1)
Quarter: 2024Q2

REPORT INFORMATION
  Report Type: Spontaneous
  Country: TW (occurrence: TW)
  Receive Date: 20240528
  Receipt Date: 20240528
  Transmission Date: 20240716
  Serious: Yes (Other)
  Sender: FDA-Public Use
  Company Number: TW-002147023-NVSC2023TW159422

PATIENT
  Age: 6 Decade
  Sex: Male

DRUGS (2)
  1. TRAMETINIB [Suspect]
     Active Substance: TRAMETINIB
     Indication: Craniopharyngioma
     Dosage: UNK
     Route: 065
  2. DABRAFENIB [Concomitant]
     Active Substance: DABRAFENIB
     Indication: Craniopharyngioma
     Dosage: UNK
     Route: 065

REACTIONS (2)
  - Acute febrile neutrophilic dermatosis [Unknown]
  - Product use in unapproved indication [Unknown]
